FAERS Safety Report 5640778-2 (Version None)
Quarter: 2008Q1

REPORT INFORMATION
  Report Type: 
  Country: None (occurrence: None)
  Receive Date: 20080227
  Receipt Date: 20080225
  Transmission Date: 20080703
  Serious: Yes (Life-Threatening)
  Sender: FDA-Public Use
  Company Number: DE-JNJFOC-20080205327

PATIENT
  Sex: Female

DRUGS (26)
  1. HALDOL [Suspect]
     Indication: ANXIETY
     Route: 042
  2. HALDOL [Suspect]
     Route: 048
  3. PHENHYDAN [Suspect]
     Indication: CONVULSION PROPHYLAXIS
     Dosage: THE DOSAGE IS ALTERNATING EVERY DAY: E.G.  1. DAY: 1-1-1 (300MG), 2. DAY 1-1 (200MG)
     Route: 048
  4. RANITIC [Suspect]
     Indication: PROPHYLAXIS
     Route: 048
  5. TAVOR [Suspect]
     Indication: ANXIETY
     Route: 042
  6. TAVOR [Suspect]
     Route: 048
  7. BELOC-ZOC [Suspect]
     Indication: HYPERTENSION
     Route: 048
  8. BENALAPRIL [Suspect]
     Indication: HYPERTENSION
     Route: 048
  9. ASPIRIN [Suspect]
     Indication: THROMBOSIS PROPHYLAXIS
     Route: 048
  10. CLEXANE [Suspect]
     Indication: THROMBOSIS PROPHYLAXIS
     Route: 058
  11. MOXONIDIN [Concomitant]
     Indication: HYPERTENSION
     Route: 048
  12. AMLODIPINE [Concomitant]
     Indication: HYPERTENSION
     Route: 048
  13. TORSEMIDE [Concomitant]
     Indication: HYPERTENSION
     Route: 048
  14. DIPIDOLOR [Concomitant]
     Indication: PAIN
     Route: 042
  15. SAB SIMPLEX [Concomitant]
     Indication: FLATULENCE
     Dosage: 20 DROPS ONCE A DAY
     Route: 048
  16. ADALAT [Concomitant]
     Indication: HYPERTENSION
     Route: 048
  17. MERONEM [Concomitant]
     Indication: INFECTION
     Route: 042
  18. ACETYLCYSTEINE [Concomitant]
     Indication: SPUTUM ABNORMAL
     Route: 048
  19. KALINOR [Concomitant]
     Indication: HYPOKALAEMIA
     Route: 048
  20. NORVASC [Concomitant]
     Indication: HYPERTENSION
     Route: 048
  21. REKAWAN [Concomitant]
     Indication: MINERAL SUPPLEMENTATION
     Route: 048
  22. SODIUM CHLORIDE [Concomitant]
     Indication: MINERAL SUPPLEMENTATION
     Dosage: 6 CAPSULES DAILY
     Route: 048
  23. VALPROATE SODIUM [Concomitant]
     Indication: CONVULSION PROPHYLAXIS
     Route: 048
  24. GASTROSIL [Concomitant]
     Indication: NAUSEA
     Dosage: 20 DROPS 3 TIMES DAILY
     Route: 048
  25. MIRTAZAPINE [Concomitant]
     Indication: ANXIETY
     Route: 048
  26. FENISTIL [Concomitant]
     Indication: PRURITUS
     Dosage: 20 DROPS 3 TIMES DAILY
     Route: 048

REACTIONS (1)
  - TOXIC EPIDERMAL NECROLYSIS [None]
